FAERS Safety Report 4386381-6 (Version None)
Quarter: 2004Q2

REPORT INFORMATION
  Report Type: 
  Country: None (occurrence: None)
  Receive Date: 20040623
  Receipt Date: 20040614
  Transmission Date: 20050107
  Serious: Yes (Hospitalization)
  Sender: FDA-Public Use
  Company Number: 2003185978IE

PATIENT
  Age: 73 Year
  Sex: Male

DRUGS (1)
  1. ZYVOX [Suspect]
     Indication: SKIN ULCER
     Dosage: 1200 MG, DAILY, ORAL
     Route: 048
     Dates: start: 20031003, end: 20031023

REACTIONS (1)
  - RENAL IMPAIRMENT [None]
